FAERS Safety Report 7605990-1 (Version None)
Quarter: 2011Q3

REPORT INFORMATION
  Report Type: 
  Country: None (occurrence: None)
  Receive Date: 20110713
  Receipt Date: 20110707
  Transmission Date: 20111222
  Serious: Yes (Death, Other)
  Sender: FDA-Public Use
  Company Number: PHHY2011IT61025

PATIENT
  Age: 55 Year
  Sex: Female

DRUGS (4)
  1. CYCLOSPORINE [Suspect]
     Indication: PROPHYLAXIS AGAINST GRAFT VERSUS HOST DISEASE
  2. LEVOFLOXACIN [Concomitant]
     Dosage: UNK UKN, UNK
  3. METHOTREXATE [Concomitant]
     Indication: PROPHYLAXIS AGAINST GRAFT VERSUS HOST DISEASE
  4. FLUCONAZOLE [Concomitant]
     Dosage: UNK UKN, UNK

REACTIONS (14)
  - RALES [None]
  - DYSPNOEA [None]
  - THROMBOCYTOPENIA [None]
  - ZYGOMYCOSIS [None]
  - CHEST PAIN [None]
  - BACK PAIN [None]
  - PLEURAL EFFUSION [None]
  - LUNG NEOPLASM [None]
  - MUSCULOSKELETAL PAIN [None]
  - PNEUMOTHORAX [None]
  - GENERAL PHYSICAL HEALTH DETERIORATION [None]
  - FEBRILE NEUTROPENIA [None]
  - HEPATIC FUNCTION ABNORMAL [None]
  - COUGH [None]
